FAERS Safety Report 24542341 (Version 1)
Quarter: 2024Q4

REPORT INFORMATION
  Report Type: Spontaneous
  Country: US (occurrence: US)
  Receive Date: 20241023
  Receipt Date: 20241023
  Transmission Date: 20250115
  Serious: Yes (Hospitalization, Other)
  Sender: DR REDDYS
  Company Number: US-DRL-USA-LIT/USA/24/0015645

PATIENT
  Age: 74 Year
  Sex: Male

DRUGS (4)
  1. CLOPIDOGREL [Suspect]
     Active Substance: CLOPIDOGREL BISULFATE
     Indication: Embolism arterial
  2. HEPARIN [Suspect]
     Active Substance: HEPARIN SODIUM
     Indication: Embolism arterial
  3. ENOXAPARIN [Concomitant]
     Active Substance: ENOXAPARIN
     Indication: Embolism arterial
  4. WARFARIN [Concomitant]
     Active Substance: WARFARIN
     Indication: Embolism arterial

REACTIONS (2)
  - Drug resistance [Unknown]
  - Drug ineffective for unapproved indication [Unknown]
